FAERS Safety Report 9319307 (Version 1)
Quarter: 2013Q2

REPORT INFORMATION
  Report Type: Spontaneous
  Country: US (occurrence: None)
  Receive Date: 20130520
  Receipt Date: 20130520
  Transmission Date: 20140414
  Serious: Yes (Other)
  Sender: FDA-Public Use
  Company Number: 38073

PATIENT
  Age: 31 Year
  Sex: Female

DRUGS (7)
  1. GLASSIA [Suspect]
     Indication: ALPHA-1 ANTI-TRYPSIN DEFICIENCY
     Route: 042
     Dates: start: 20110711, end: 20130208
  2. PAXIL PROAIR HFA [Concomitant]
  3. VENTOLIN [Concomitant]
  4. HFA [Concomitant]
  5. REQUIPT [Concomitant]
  6. PRILOSEC [Concomitant]
  7. TOPAMAX [Concomitant]

REACTIONS (4)
  - Treatment noncompliance [None]
  - Convulsion [None]
  - Muscle twitching [None]
  - Hypertension [None]
